FAERS Safety Report 8453486-X (Version None)
Quarter: 2012Q2

REPORT INFORMATION
  Report Type: 
  Country: None (occurrence: None)
  Receive Date: 20120620
  Receipt Date: 20120521
  Transmission Date: 20120825
  Serious: No
  Sender: FDA-Public Use
  Company Number: US-VERTEX PHARMACEUTICALS INC.-AE-2012-007428

PATIENT
  Sex: Female
  Weight: 77.18 kg

DRUGS (6)
  1. INCIVEK [Suspect]
     Indication: HEPATITIS C
     Route: 048
     Dates: start: 20120516
  2. WELLBUTRIN [Concomitant]
  3. VISTARIL [Concomitant]
  4. VYVANSE [Concomitant]
  5. RIBAVIRIN [Concomitant]
     Indication: HEPATITIS C
     Dates: start: 20120516
  6. PEGASYS [Concomitant]
     Indication: HEPATITIS C
     Dates: start: 20120516

REACTIONS (3)
  - GENITAL RASH [None]
  - VOMITING [None]
  - PRURITUS [None]
